FAERS Safety Report 14761785 (Version 1)
Quarter: 2018Q2

REPORT INFORMATION
  Report Type: Spontaneous
  Country: US (occurrence: US)
  Receive Date: 20180416
  Receipt Date: 20180416
  Transmission Date: 20180711
  Serious: No
  Sender: FDA-Public Use
  Company Number: US-BION-006436

PATIENT
  Age: 41 Year
  Sex: Male
  Weight: 104 kg

DRUGS (1)
  1. ALEVE [Suspect]
     Active Substance: NAPROXEN SODIUM
     Indication: PAIN
     Dosage: TAKING 2/DAY MONDAY-FRIDAY SINCE MAR-2017
     Route: 048
     Dates: start: 2016

REACTIONS (5)
  - Incorrect drug administration duration [Not Recovered/Not Resolved]
  - Feeling abnormal [Recovered/Resolved]
  - Micturition frequency decreased [Not Recovered/Not Resolved]
  - Head discomfort [Recovered/Resolved]
  - Drug prescribing error [Not Recovered/Not Resolved]

NARRATIVE: CASE EVENT DATE: 201608
